FAERS Safety Report 4353638-4 (Version None)
Quarter: 2004Q2

REPORT INFORMATION
  Report Type: 
  Country: None (occurrence: None)
  Receive Date: 20040430
  Receipt Date: 20040420
  Transmission Date: 20050107
  Serious: Yes (Death, Life-Threatening, Hospitalization, Disabling)
  Sender: FDA-Public Use
  Company Number: 04P-020-0252582-00

PATIENT
  Age: 28 Year
  Sex: Female
  Weight: 53 kg

DRUGS (14)
  1. KALETRA [Suspect]
     Indication: HIV INFECTION
     Dosage: 3 CAPSULES, 2 IN 1 D, PER ORAL
     Route: 048
     Dates: start: 20030519, end: 20030806
  2. RIFAMPICIN [Suspect]
     Indication: MYCOBACTERIAL INFECTION
     Dosage: 600 MG 2 IN 1 D, PER ORAL
     Route: 048
     Dates: start: 20030524, end: 20030703
  3. RIFAMPICIN [Suspect]
     Indication: TUBERCULOSIS
     Dosage: 600 MG 2 IN 1 D, PER ORAL
     Route: 048
     Dates: start: 20030524, end: 20030703
  4. ISONIAZID [Suspect]
     Indication: MYCOBACTERIAL INFECTION
     Dosage: 400 MG, 2 IN 1 D PER ORAL
     Route: 048
     Dates: start: 20030524, end: 20030703
  5. ISONIAZID [Suspect]
     Indication: TUBERCULOSIS
     Dosage: 400 MG, 2 IN 1 D PER ORAL
     Route: 048
     Dates: start: 20030524, end: 20030703
  6. ETHAMBUTOL HCL [Suspect]
     Indication: MYCOBACTERIAL INFECTION
     Dosage: 300 MG, 3 IN 1 D PER ORAL
     Route: 048
     Dates: start: 20030524, end: 20030703
  7. ETHAMBUTOL HCL [Suspect]
     Indication: TUBERCULOSIS
     Dosage: 300 MG, 3 IN 1 D PER ORAL
     Route: 048
     Dates: start: 20030524, end: 20030703
  8. PYRAZINAMIDE [Suspect]
     Indication: MYCOBACTERIAL INFECTION
     Dosage: 100 MG 1 IN 1 D, PER ORAL
     Route: 048
     Dates: start: 20030523, end: 20030703
  9. PYRAZINAMIDE [Suspect]
     Indication: TUBERCULOSIS
     Dosage: 100 MG 1 IN 1 D, PER ORAL
     Route: 048
     Dates: start: 20030523, end: 20030703
  10. FLUCONAZOLE [Suspect]
     Indication: FUNGAL INFECTION
     Dosage: 100 MG, 1 IN 1 D, PER ORAL
     Route: 048
  11. FLUCONAZOLE [Suspect]
     Indication: ORAL CANDIDIASIS
     Dosage: 100 MG, 1 IN 1 D, PER ORAL
     Route: 048
  12. BACTRIM [Concomitant]
  13. AZITHROMYCIN [Concomitant]
  14. ZIDOVUDINE W/LAMIVUDINE [Concomitant]

REACTIONS (7)
  - DRUG INTERACTION [None]
  - GENERAL PHYSICAL HEALTH DETERIORATION [None]
  - HIV INFECTION [None]
  - PANCREATITIS ACUTE [None]
  - PLEURAL EFFUSION [None]
  - PULMONARY TUBERCULOSIS [None]
  - SEPTIC SHOCK [None]
